FAERS Safety Report 7488410-X (Version None)
Quarter: 2011Q2

REPORT INFORMATION
  Report Type: 
  Country: None (occurrence: None)
  Receive Date: 20110511
  Receipt Date: 20110504
  Transmission Date: 20111010
  Serious: Yes (Life-Threatening, Other)
  Sender: FDA-Public Use
  Company Number: 2011US000043

PATIENT
  Age: 84 Year
  Sex: Male
  Weight: 78.0187 kg

DRUGS (7)
  1. SIMVASTATIN [Concomitant]
  2. ARICEPT [Concomitant]
  3. ASPIRIN [Concomitant]
  4. HYDRALAZINE HCL [Concomitant]
  5. ATENOLOL [Concomitant]
  6. OXYBUTYNIN [Concomitant]
  7. ENTEREG [Suspect]
     Indication: POSTOPERATIVE ILEUS
     Dosage: 12 MG; PO
     Route: 048
     Dates: start: 20110322, end: 20110324

REACTIONS (2)
  - DIASTOLIC DYSFUNCTION [None]
  - ACUTE MYOCARDIAL INFARCTION [None]
